FAERS Safety Report 7490990-5 (Version None)
Quarter: 2011Q2

REPORT INFORMATION
  Report Type: 
  Country: None (occurrence: None)
  Receive Date: 20110519
  Receipt Date: 20110303
  Transmission Date: 20111010
  Serious: Yes (Hospitalization)
  Sender: FDA-Public Use
  Company Number: DE-ACTELION-A-US2011-48799

PATIENT

DRUGS (1)
  1. VENTAVIS [Suspect]
     Indication: PRODUCT USED FOR UNKNOWN INDICATION
     Dosage: 2.5 UG, 6 X DAY
     Route: 055

REACTIONS (5)
  - RENAL FAILURE [None]
  - PNEUMONIA [None]
  - PLEURISY [None]
  - BRONCHIAL CARCINOMA [None]
  - SEPSIS [None]
